FAERS Safety Report 12241871 (Version 1)
Quarter: 2016Q2

REPORT INFORMATION
  Report Type: Spontaneous
  Country: US (occurrence: None)
  Receive Date: 20160405
  Receipt Date: 20160405
  Transmission Date: 20160815
  Serious: Yes (Life-Threatening, Hospitalization)
  Sender: FDA-Public Use
  Company Number: None

PATIENT
  Age: 71 Year
  Sex: Male
  Weight: 77.11 kg

DRUGS (11)
  1. CAEXODILOL [Concomitant]
  2. OMPEPRAZOLE [Concomitant]
  3. PERCOCET [Concomitant]
     Active Substance: ACETAMINOPHEN\OXYCODONE HYDROCHLORIDE
  4. VITAMIN D3 [Concomitant]
     Active Substance: CHOLECALCIFEROL
  5. LIPITOR [Concomitant]
     Active Substance: ATORVASTATIN CALCIUM
  6. OXCARBAZEPINE CARACO [Suspect]
     Active Substance: OXCARBAZEPINE
     Indication: PAIN
     Dosage: 1 PILL
     Route: 048
  7. VALSARTAN AND HYDROCHLOROTHIAZIDE [Concomitant]
     Active Substance: HYDROCHLOROTHIAZIDE\VALSARTAN
  8. ASA [Concomitant]
     Active Substance: ASPIRIN
  9. IBUPROFENEN [Concomitant]
  10. CIPRONIATE [Concomitant]
  11. NORCO [Concomitant]
     Active Substance: ACETAMINOPHEN\HYDROCODONE BITARTRATE

REACTIONS (8)
  - Vertigo [None]
  - Inner ear disorder [None]
  - Joint injury [None]
  - Fall [None]
  - Confusional state [None]
  - Hyponatraemia [None]
  - Toxicity to various agents [None]
  - Ataxia [None]

NARRATIVE: CASE EVENT DATE: 20160229
